FAERS Safety Report 22724334 (Version 2)
Quarter: 2023Q4

REPORT INFORMATION
  Report Type: Spontaneous
  Country: CN (occurrence: CN)
  Receive Date: 20230719
  Receipt Date: 20231006
  Transmission Date: 20240110
  Serious: Yes (Life-Threatening)
  Sender: FDA-Public Use
  Company Number: CN-BAYER-2023A098803

PATIENT
  Age: 51 Year
  Sex: Female

DRUGS (2)
  1. ULTRAVIST [Suspect]
     Active Substance: IOPROMIDE
     Indication: Angiocardiogram
     Dosage: 30 ML, ONCE
     Route: 042
     Dates: start: 20230628, end: 20230628
  2. ULTRAVIST [Suspect]
     Active Substance: IOPROMIDE
     Indication: Coronary artery disease

REACTIONS (7)
  - Contrast media allergy [Recovering/Resolving]
  - Syncope [Recovered/Resolved]
  - Loss of consciousness [Recovered/Resolved]
  - Hypoaesthesia [None]
  - Conjunctival hyperaemia [None]
  - Blood pressure diastolic increased [Recovered/Resolved]
  - Blood pressure decreased [Recovered/Resolved]

NARRATIVE: CASE EVENT DATE: 20230628
